FAERS Safety Report 8163316-1 (Version None)
Quarter: 2012Q1

REPORT INFORMATION
  Report Type: 
  Country: None (occurrence: None)
  Receive Date: 20120224
  Receipt Date: 20110217
  Transmission Date: 20120608
  Serious: No
  Sender: FDA-Public Use
  Company Number: US-PFIZER INC-K201100258

PATIENT
  Sex: Female
  Weight: 63.492 kg

DRUGS (2)
  1. FLECTOR [Suspect]
     Indication: BACK PAIN
     Dosage: 1 PATCH, SINGLE
     Route: 061
     Dates: start: 20110308, end: 20110308
  2. OXYCODONE HCL [Suspect]
     Indication: BACK PAIN
     Dosage: 325 MG, AS NEEDED
     Route: 048

REACTIONS (5)
  - DYSPNOEA [None]
  - HYPERHIDROSIS [None]
  - DYSARTHRIA [None]
  - ERYTHEMA [None]
  - GAIT DISTURBANCE [None]
